FAERS Safety Report 7080361-8 (Version None)
Quarter: 2010Q4

REPORT INFORMATION
  Report Type: 
  Country: None (occurrence: None)
  Receive Date: 20101103
  Receipt Date: 20101025
  Transmission Date: 20110411
  Serious: Yes (Hospitalization)
  Sender: FDA-Public Use
  Company Number: US-JNJFOC-20101007433

PATIENT
  Sex: Female
  Weight: 81.19 kg

DRUGS (12)
  1. FENTANYL CITRATE [Suspect]
     Indication: GROIN PAIN
     Route: 062
  2. FENTANYL CITRATE [Suspect]
     Indication: ARTHRITIS
     Route: 062
  3. FENTANYL CITRATE [Suspect]
     Indication: BACK PAIN
     Route: 062
  4. FENTANYL CITRATE [Suspect]
     Route: 062
  5. FENTANYL CITRATE [Suspect]
     Route: 062
  6. FENTANYL CITRATE [Suspect]
     Route: 062
  7. NEURONTIN [Concomitant]
     Indication: NEUROPATHY PERIPHERAL
     Route: 048
  8. LOPRESSOR [Concomitant]
     Indication: HYPERTENSION
     Route: 048
  9. DITROPAN [Concomitant]
     Indication: BLADDER DISORDER
     Route: 048
  10. LOPID [Concomitant]
     Indication: BLOOD CHOLESTEROL INCREASED
     Route: 048
  11. GLUCOPHAGE [Concomitant]
     Indication: DIABETES MELLITUS
     Route: 048
  12. AMARYL [Concomitant]
     Indication: DIABETES MELLITUS
     Route: 048

REACTIONS (5)
  - BREAST CANCER [None]
  - NAUSEA [None]
  - PRODUCT ADHESION ISSUE [None]
  - TONSIL CANCER [None]
  - WRONG TECHNIQUE IN DRUG USAGE PROCESS [None]
